FAERS Safety Report 15843069 (Version 1)
Quarter: 2019Q1

REPORT INFORMATION
  Report Type: Spontaneous
  Country: US (occurrence: US)
  Receive Date: 20190118
  Receipt Date: 20190118
  Transmission Date: 20190417
  Serious: No
  Sender: FDA-Public Use
  Company Number: US-INSMED, INC.-US-INS-18-00356

PATIENT
  Sex: Male

DRUGS (3)
  1. ARIKAYCE [Suspect]
     Active Substance: AMIKACIN
     Indication: PRODUCT USED FOR UNKNOWN INDICATION
     Route: 055
     Dates: start: 20181130
  2. OXYGEN. [Concomitant]
     Active Substance: OXYGEN
     Indication: GENERAL PHYSICAL CONDITION
  3. LAMIRA NEBULIZER SYSTEM [Suspect]
     Active Substance: DEVICE

REACTIONS (5)
  - Cough [Unknown]
  - Panic attack [Unknown]
  - Aspiration [Unknown]
  - Oxygen saturation decreased [Unknown]
  - Dyspnoea [Unknown]
